FAERS Safety Report 9614315 (Version 1)
Quarter: 2013Q4

REPORT INFORMATION
  Report Type: Spontaneous
  Country: US (occurrence: None)
  Receive Date: 20131008
  Receipt Date: 20131008
  Transmission Date: 20140711
  Serious: No
  Sender: FDA-Public Use
  Company Number: None

PATIENT
  Age: 77 Year
  Sex: Male
  Weight: 80 kg

DRUGS (1)
  1. SILVER SULFADIAZINE [Suspect]
     Indication: WOUND
     Dosage: 1 EVERY DAY TOP
     Dates: start: 20110904, end: 20111213

REACTIONS (1)
  - Dermatitis contact [None]
